FAERS Safety Report 13939174 (Version 1)
Quarter: 2017Q3

REPORT INFORMATION
  Report Type: Spontaneous
  Country: FR (occurrence: FR)
  Receive Date: 20170906
  Receipt Date: 20170906
  Transmission Date: 20171127
  Serious: Yes (Hospitalization, Other)
  Sender: FDA-Public Use
  Company Number: FR-ACTELION-A-CH2017-158881

PATIENT
  Age: 62 Year
  Sex: Female

DRUGS (7)
  1. METHOTREXATE. [Concomitant]
     Active Substance: METHOTREXATE
  2. LASIX [Concomitant]
     Active Substance: FUROSEMIDE
  3. ADCIRCA [Concomitant]
     Active Substance: TADALAFIL
  4. VOLIBRIS [Concomitant]
     Active Substance: AMBRISENTAN
  5. IMUREL [Concomitant]
     Active Substance: AZATHIOPRINE SODIUM
  6. TRACLEER [Suspect]
     Active Substance: BOSENTAN
     Indication: PULMONARY ARTERIAL HYPERTENSION
     Route: 048
  7. ALDACTONE [Concomitant]
     Active Substance: SPIRONOLACTONE

REACTIONS (4)
  - Cardiac failure [Unknown]
  - Pulmonary arterial hypertension [Unknown]
  - Renal failure [Unknown]
  - Concomitant disease aggravated [Unknown]
